FAERS Safety Report 10469436 (Version 1)
Quarter: 2014Q3

REPORT INFORMATION
  Report Type: Spontaneous
  Country: US (occurrence: None)
  Receive Date: 20140919
  Receipt Date: 20140919
  Transmission Date: 20150326
  Serious: Yes (Hospitalization)
  Sender: FDA-Public Use
  Company Number: 2014NUEUSA00374

PATIENT
  Age: 92 Year
  Sex: Male

DRUGS (4)
  1. NUEDEXTA [Suspect]
     Active Substance: DEXTROMETHORPHAN HYDROBROMIDE\QUINIDINE SULFATE
     Indication: PRODUCT USED FOR UNKNOWN INDICATION
     Dosage: SINGLE?
     Dates: start: 20140907, end: 20140907
  2. DEPAKOTE [Concomitant]
     Active Substance: DIVALPROEX SODIUM
  3. NAMENDA XR (MEMANTINE HYDROCHLORIDE) [Concomitant]
  4. ALL OTHER THERAPEUTIC PRODUCTS [Suspect]
     Active Substance: UNSPECIFIED INGREDIENT
     Indication: ABNORMAL BEHAVIOUR

REACTIONS (3)
  - Urinary tract infection [None]
  - Syncope [None]
  - Bradycardia [None]

NARRATIVE: CASE EVENT DATE: 20140907
